FAERS Safety Report 10945575 (Version 1)
Quarter: 2015Q1

REPORT INFORMATION
  Report Type: Spontaneous
  Country: US (occurrence: US)
  Receive Date: 20150323
  Receipt Date: 20150323
  Transmission Date: 20150721
  Serious: No
  Sender: FDA-Public Use
  Company Number: US-BAUSCH-BL-2015-000512

PATIENT
  Sex: Male

DRUGS (1)
  1. JUBLIA [Suspect]
     Active Substance: EFINACONAZOLE
     Indication: NAIL DISCOLOURATION
     Route: 061

REACTIONS (2)
  - Infection [Not Recovered/Not Resolved]
  - Haemorrhage [Not Recovered/Not Resolved]
